FAERS Safety Report 20893932 (Version 14)
Quarter: 2024Q4

REPORT INFORMATION
  Report Type: Report from Study
  Country: US (occurrence: US)
  Receive Date: 20220531
  Receipt Date: 20241114
  Transmission Date: 20250114
  Serious: Yes (Hospitalization, Other)
  Sender: TAKEDA
  Company Number: US-TAKEDA-2022TUS035671

PATIENT
  Age: 69 Year
  Sex: Female

DRUGS (3)
  1. HUMAN IMMUNOGLOBULIN G [Suspect]
     Active Substance: HUMAN IMMUNOGLOBULIN G
     Indication: Hypogammaglobulinaemia
     Dosage: UNK, MONTHLY
  2. HUMAN IMMUNOGLOBULIN G [Suspect]
     Active Substance: HUMAN IMMUNOGLOBULIN G
     Indication: Primary immunodeficiency syndrome
     Dosage: UNK
  3. HUMAN IMMUNOGLOBULIN G [Suspect]
     Active Substance: HUMAN IMMUNOGLOBULIN G
     Dosage: UNK, Q2WEEKS

REACTIONS (38)
  - Cataract [Unknown]
  - Autoimmune disorder [Unknown]
  - Myasthenia gravis [Unknown]
  - Pericardial effusion [Unknown]
  - Poor venous access [Unknown]
  - Endocarditis [Unknown]
  - Vascular device infection [Unknown]
  - Cardiac ventricular thrombosis [Recovered/Resolved]
  - Ear infection [Unknown]
  - Rib fracture [Unknown]
  - Ulna fracture [Unknown]
  - Ligament rupture [Recovering/Resolving]
  - Procedural pain [Not Recovered/Not Resolved]
  - Road traffic accident [Unknown]
  - Pneumonia [Unknown]
  - Upper respiratory tract infection [Unknown]
  - Coronary artery thrombosis [Unknown]
  - Arteriovenous fistula thrombosis [Unknown]
  - Muscle spasms [Unknown]
  - Restless legs syndrome [Unknown]
  - Illness [Unknown]
  - Lymphoedema [Unknown]
  - Blood immunoglobulin M decreased [Unknown]
  - Laryngitis [Unknown]
  - Product use in unapproved indication [Unknown]
  - Pain [Unknown]
  - Asthma [Unknown]
  - Rash [Unknown]
  - Ligament disorder [Unknown]
  - Fistula [Unknown]
  - Post-acute COVID-19 syndrome [Recovered/Resolved]
  - Inappropriate schedule of product administration [Unknown]
  - Intervertebral disc degeneration [Unknown]
  - Device dislocation [Unknown]
  - Device issue [Unknown]
  - Feeling abnormal [Unknown]
  - Arterial thrombosis [Unknown]
  - Fatigue [Unknown]

NARRATIVE: CASE EVENT DATE: 20240603
